FAERS Safety Report 8362648-1 (Version None)
Quarter: 2012Q2

REPORT INFORMATION
  Report Type: 
  Country: None (occurrence: None)
  Receive Date: 20120516
  Receipt Date: 20120510
  Transmission Date: 20120825
  Serious: No
  Sender: FDA-Public Use
  Company Number: US-PFIZER INC-2012081060

PATIENT
  Sex: Female

DRUGS (4)
  1. VITAMIN D [Concomitant]
     Dosage: UNK
  2. ACETYLSALICYLIC ACID [Concomitant]
     Dosage: UNK
  3. IBUPROFEN (ADVIL) [Suspect]
     Indication: SCIATICA
     Dosage: 200 MG, 1X/DAY
     Route: 048
     Dates: start: 20120201
  4. VITAMIN B-12 [Concomitant]
     Dosage: UNK, 1X/DAY

REACTIONS (1)
  - DRUG INEFFECTIVE [None]
